FAERS Safety Report 11116200 (Version 1)
Quarter: 2015Q2

REPORT INFORMATION
  Report Type: Spontaneous
  Country: US (occurrence: CA)
  Receive Date: 20150515
  Receipt Date: 20150515
  Transmission Date: 20150821
  Serious: Yes (Other)
  Sender: FDA-Public Use
  Company Number: CA-TEVA-562336USA

PATIENT
  Age: 55 Year
  Sex: Male

DRUGS (1)
  1. RATIO-OXYCOCET [Suspect]
     Active Substance: ACETAMINOPHEN\OXYCODONE HYDROCHLORIDE
     Indication: TOOTHACHE
     Dosage: UNIT DOSE: ACETAMINOPHEN 325MG AND OXYCODONE 5MG.TOOK 1 TABLET 6 MONTHS AND 3 MONTHS AGO.
     Route: 048

REACTIONS (6)
  - Rash [Recovered/Resolved]
  - Suspected counterfeit product [Unknown]
  - Blood pressure increased [Recovered/Resolved]
  - Burning sensation [Recovered/Resolved]
  - Loss of consciousness [Recovered/Resolved]
  - Feeling abnormal [Recovered/Resolved]
